FAERS Safety Report 6811473-9 (Version None)
Quarter: 2010Q2

REPORT INFORMATION
  Report Type: 
  Country: None (occurrence: None)
  Receive Date: 20100629
  Receipt Date: 20100629
  Transmission Date: 20101027
  Serious: Yes (Hospitalization)
  Sender: FDA-Public Use
  Company Number: None

PATIENT
  Age: 45 Year
  Sex: Female
  Weight: 58.9676 kg

DRUGS (1)
  1. YAZ [Suspect]
     Indication: MENORRHAGIA
     Dosage: 1 PER DAY, .3 MG/0.02 MG 1 PER DAY P
     Route: 048
     Dates: start: 20080801, end: 20090703

REACTIONS (1)
  - PULMONARY EMBOLISM [None]
